FAERS Safety Report 5044602-0 (Version None)
Quarter: 2006Q2

REPORT INFORMATION
  Report Type: 
  Country: None (occurrence: None)
  Receive Date: 20060629
  Receipt Date: 20060406
  Transmission Date: 20061013
  Serious: Yes (Life-Threatening, Hospitalization, Other)
  Sender: FDA-Public Use
  Company Number: 805#9#2006-00033

PATIENT
  Age: 1 Day
  Sex: Female

DRUGS (15)
  1. PROSTANDIN-I.V. (ALPROSTANDIL (PAOD)) [Suspect]
     Indication: HEART DISEASE CONGENITAL
     Dosage: INTRAVENOUS DRIP
     Route: 041
     Dates: start: 20041102, end: 20041122
  2. AMINOPHYLLINE [Concomitant]
  3. CEFAZOLIN SODIUM HYDRATE [Concomitant]
  4. SODIUM BICARBONATE [Concomitant]
  5. MIDAZOLAM HYDROCHLORIDE [Concomitant]
  6. FUROSEMIDE [Concomitant]
  7. CHOLINE THEOPHYLLINE [Concomitant]
  8. SPIRONOLACTONE [Concomitant]
  9. CEFMETAZOLE SODIUM [Concomitant]
  10. GENTAMICIN SULFATE [Concomitant]
  11. POLETHYLENE GLYCOL TREATED HUMAN NORMAL IMMUNOGLOBULIN (IMMUNOGLOBULIN [Concomitant]
  12. PANIPENEM/BETAMIPRON [Concomitant]
  13. AMINOPHYLLINE [Concomitant]
  14. IOPAMIDOL [Concomitant]
  15. PETHIDINE HYDROCHLORIDE/LEVALLORPHAN TARTRATE (LEVALLORPHAN TARTRATE, [Concomitant]

REACTIONS (10)
  - APNOEA [None]
  - BLOOD PRESSURE DECREASED [None]
  - BRACHIAL PULSE INCREASED [None]
  - CARDIAC FAILURE [None]
  - GASTROINTESTINAL INFECTION [None]
  - GENERAL PHYSICAL CONDITION ABNORMAL [None]
  - INTESTINAL ISCHAEMIA [None]
  - INTESTINAL PERFORATION [None]
  - OXYGEN SATURATION DECREASED [None]
  - SKIN IRRITATION [None]
